FAERS Safety Report 5830376-X (Version None)
Quarter: 2008Q3

REPORT INFORMATION
  Report Type: 
  Country: None (occurrence: None)
  Receive Date: 20080801
  Receipt Date: 20080724
  Transmission Date: 20090109
  Serious: Yes (Other)
  Sender: FDA-Public Use
  Company Number: US-JNJCH-2008019666

PATIENT
  Age: 20 Year
  Sex: Male
  Weight: 113.9 kg

DRUGS (1)
  1. COOL MINT LISTERINE POCKETMIST [Suspect]
     Indication: ACCIDENTAL EXPOSURE
     Dosage: TEXT:ONCE
     Route: 047
     Dates: start: 20080724, end: 20080724

REACTIONS (3)
  - ACCIDENTAL EXPOSURE [None]
  - APPLICATION SITE BURN [None]
  - INCORRECT ROUTE OF DRUG ADMINISTRATION [None]
